FAERS Safety Report 5549474-3 (Version None)
Quarter: 2007Q4

REPORT INFORMATION
  Report Type: 
  Country: None (occurrence: None)
  Receive Date: 20071212
  Receipt Date: 20071204
  Transmission Date: 20080405
  Serious: Yes (Other)
  Sender: FDA-Public Use
  Company Number: PHBS2007JP14044

PATIENT
  Sex: Male
  Weight: 80 kg

DRUGS (2)
  1. VOLTAREN [Suspect]
     Indication: PYREXIA
     Dosage: 25 MG/DAY
     Route: 054
     Dates: start: 20070801
  2. INTERFERON [Concomitant]

REACTIONS (2)
  - ANAL HAEMORRHAGE [None]
  - TRAUMATIC HAEMORRHAGE [None]
